FAERS Safety Report 4983071-3 (Version None)
Quarter: 2006Q2

REPORT INFORMATION
  Report Type: 
  Country: None (occurrence: None)
  Receive Date: 20060419
  Receipt Date: 20060406
  Transmission Date: 20061013
  Serious: Yes (Hospitalization)
  Sender: FDA-Public Use
  Company Number: 2006BI005179

PATIENT
  Age: 35 Year
  Sex: Female
  Weight: 81 kg

DRUGS (4)
  1. AVONEX [Suspect]
     Indication: MULTIPLE SCLEROSIS
     Dosage: 30 UG: QW; IM
     Dates: start: 19990110
  2. AVONEX [Suspect]
     Indication: MULTIPLE SCLEROSIS
     Dosage: 30 UG; QW; IM
     Route: 030
  3. IBUPROFEN [Concomitant]
  4. CEFAZOLIN [Concomitant]

REACTIONS (6)
  - COGNITIVE DISORDER [None]
  - COLITIS ULCERATIVE [None]
  - FATIGUE [None]
  - INFLAMMATION [None]
  - MULTIPLE SCLEROSIS RELAPSE [None]
  - SPINAL OSTEOARTHRITIS [None]
